FAERS Safety Report 8051870-X (Version None)
Quarter: 2012Q1

REPORT INFORMATION
  Report Type: 
  Country: None (occurrence: None)
  Receive Date: 20120110
  Receipt Date: 20111226
  Transmission Date: 20120608
  Serious: Yes (Hospitalization)
  Sender: FDA-Public Use
  Company Number: JP-2011-13073

PATIENT
  Age: 43 Year
  Sex: Female
  Weight: 59.2 kg

DRUGS (3)
  1. LEVOFLOXACIN [Concomitant]
  2. VOLTAREN [Concomitant]
  3. OPC-41061 (TOLVAPTAN) TABLET [Suspect]
     Indication: CONGENITAL CYSTIC KIDNEY DISEASE
     Dosage: 30 MG MILLIGRAM(S), DAILY DOSE, ORAL
     Route: 048
     Dates: start: 20100128, end: 20111216

REACTIONS (6)
  - HEADACHE [None]
  - PYELONEPHRITIS [None]
  - ARTHRALGIA [None]
  - BACTERIAL TEST POSITIVE [None]
  - PYREXIA [None]
  - NAUSEA [None]
